FAERS Safety Report 5702169-5 (Version None)
Quarter: 2008Q2

REPORT INFORMATION
  Report Type: 
  Country: None (occurrence: None)
  Receive Date: 20080411
  Receipt Date: 20080402
  Transmission Date: 20081010
  Serious: Yes (Hospitalization)
  Sender: FDA-Public Use
  Company Number: PHHY2008GT04290

PATIENT
  Age: 82 Year
  Sex: Male

DRUGS (5)
  1. DIOVAN [Suspect]
     Indication: HYPERTENSION
     Dosage: 320 MG
     Route: 048
  2. ISOPTIN [Concomitant]
     Dosage: 120MG EVERY 12 HOUR
     Route: 048
  3. ATELIT [Concomitant]
     Dosage: 75 MG, UNK
     Route: 048
  4. LIPITOR [Concomitant]
     Route: 048
  5. SYMBICORT [Concomitant]
     Dosage: ONE INHALATION EVERY 12 HOUR

REACTIONS (3)
  - EXTRASYSTOLES [None]
  - SYNCOPE [None]
  - VENTRICULAR EXTRASYSTOLES [None]
